FAERS Safety Report 9155294 (Version 1)
Quarter: 2013Q1

REPORT INFORMATION
  Report Type: Spontaneous
  Country: IT (occurrence: IT)
  Receive Date: 20130311
  Receipt Date: 20130311
  Transmission Date: 20140127
  Serious: Yes (Hospitalization)
  Sender: FDA-Public Use
  Company Number: IT-ROCHE-1199324

PATIENT
  Age: 54 Year
  Sex: Female

DRUGS (1)
  1. TORADOL [Suspect]
     Indication: PRODUCT USED FOR UNKNOWN INDICATION
     Dosage: 20 MG/ML
     Route: 048
     Dates: start: 20121114, end: 20121115

REACTIONS (5)
  - Anaemia [Recovered/Resolved]
  - Abdominal pain [Recovered/Resolved]
  - Nephropathy [Recovered/Resolved]
  - Vomiting [Recovered/Resolved]
  - Prerenal failure [Recovered/Resolved]
